FAERS Safety Report 21650659 (Version 2)
Quarter: 2022Q4

REPORT INFORMATION
  Report Type: Spontaneous
  Country: JP (occurrence: JP)
  Receive Date: 20221128
  Receipt Date: 20221228
  Transmission Date: 20230112
  Serious: Yes (Other)
  Sender: FDA-Public Use
  Company Number: JP-MYLANLABS-2022M1131510

PATIENT
  Age: 82 Year
  Sex: Male

DRUGS (4)
  1. CARBOPLATIN [Suspect]
     Active Substance: CARBOPLATIN
     Indication: Sarcomatoid mesothelioma
     Dosage: RECEIVED FIRST LINE CYCLICAL TREATMENT AT AREA UNDER THE CONCENTRATION-TIME CURVE OF 4.5,ONE CYCLE U
     Route: 065
  2. CARBOPLATIN [Suspect]
     Active Substance: CARBOPLATIN
     Indication: Pleural mesothelioma malignant
  3. PEMETREXED [Suspect]
     Active Substance: PEMETREXED
     Indication: Sarcomatoid mesothelioma
     Dosage: 375 MILLIGRAM/SQ. METER, CYCLE, RECEIVED FIRST LINE CYCLICAL TREATMENT, ONE CYCLE UNDER SYSTEMIC CHE
     Route: 065
  4. PEMETREXED [Suspect]
     Active Substance: PEMETREXED
     Indication: Pleural mesothelioma malignant

REACTIONS (1)
  - Drug ineffective [Unknown]
